FAERS Safety Report 23381394 (Version 1)
Quarter: 2024Q1

REPORT INFORMATION
  Report Type: Spontaneous
  Country: US (occurrence: US)
  Receive Date: 20240109
  Receipt Date: 20240109
  Transmission Date: 20240409
  Serious: Yes (Life-Threatening, Hospitalization, Other)
  Sender: FDA-Public Use
  Company Number: US-MLMSERVICE-2023122547424341

PATIENT
  Age: 12 Year
  Sex: Female
  Weight: 63 kg

DRUGS (1)
  1. AMLODIPINE [Suspect]
     Active Substance: AMLODIPINE BESYLATE
     Dosage: FOUR DAYS PRIOR
     Route: 048

REACTIONS (7)
  - Cardiac failure high output [Recovering/Resolving]
  - Renal failure [Recovering/Resolving]
  - Multiple organ dysfunction syndrome [Recovering/Resolving]
  - Condition aggravated [Recovering/Resolving]
  - Intentional overdose [Unknown]
  - Acute respiratory distress syndrome [Recovering/Resolving]
  - Distributive shock [Recovering/Resolving]
